FAERS Safety Report 11323103 (Version 8)
Quarter: 2021Q4

REPORT INFORMATION
  Report Type: Spontaneous
  Country: DE (occurrence: DE)
  Receive Date: 20150730
  Receipt Date: 20211022
  Transmission Date: 20220303
  Serious: Yes (Death, Hospitalization, Other)
  Sender: FDA-Public Use
  Company Number: DE-AMGEN-DEUSP2015075591

PATIENT
  Age: 70 Year
  Sex: Female
  Weight: 46.5 kg

DRUGS (30)
  1. XGEVA [Suspect]
     Active Substance: DENOSUMAB
     Indication: Metastases to bone
     Dosage: 120 MG, Q4WK
     Route: 058
     Dates: start: 20140228, end: 20140901
  2. VINORELBINE [Suspect]
     Active Substance: VINORELBINE TARTRATE
     Indication: Product used for unknown indication
     Dosage: 50 MILLIGRAM/SQ. METER
     Route: 048
     Dates: start: 20140307, end: 20140314
  3. VINORELBINE [Suspect]
     Active Substance: VINORELBINE TARTRATE
     Dosage: 50 MILLIGRAM/SQ. METER
     Route: 048
     Dates: start: 20140328, end: 20140404
  4. VINORELBINE [Suspect]
     Active Substance: VINORELBINE TARTRATE
     Dosage: 50 MILLIGRAM/SQ. METER
     Route: 048
     Dates: start: 20140418, end: 20140425
  5. VINORELBINE [Suspect]
     Active Substance: VINORELBINE TARTRATE
     Dosage: 20 MILLIGRAM/SQ. METER
     Route: 048
     Dates: start: 20140519, end: 20140519
  6. VINORELBINE [Suspect]
     Active Substance: VINORELBINE TARTRATE
     Dosage: 20 MILLIGRAM/SQ. METER
     Route: 048
     Dates: start: 20140612, end: 20140623
  7. VINORELBINE [Suspect]
     Active Substance: VINORELBINE TARTRATE
     Dosage: 20 MILLIGRAM/SQ. METER
     Route: 048
     Dates: start: 20140707, end: 20140714
  8. VINORELBINE [Suspect]
     Active Substance: VINORELBINE TARTRATE
     Dosage: 20 MILLIGRAM/SQ. METER
     Route: 048
     Dates: start: 20140728, end: 20140804
  9. VINORELBINE [Suspect]
     Active Substance: VINORELBINE TARTRATE
     Dosage: 20 MILLIGRAM/SQ. METER
     Route: 048
     Dates: start: 20140818, end: 20140825
  10. VINORELBINE [Suspect]
     Active Substance: VINORELBINE TARTRATE
     Dosage: 20 MILLIGRAM/SQ. METER
     Route: 048
     Dates: start: 20140908, end: 20140915
  11. ENOXAPARIN SODIUM [Concomitant]
     Active Substance: ENOXAPARIN SODIUM
     Indication: Prophylaxis
     Dosage: 40 MG, UNK
     Dates: start: 20140320, end: 20140327
  12. DULCOLAX NOS [Concomitant]
     Active Substance: BISACODYL OR DOCUSATE SODIUM
     Indication: Adverse event
     Dosage: UNK
     Dates: start: 20140519, end: 20140519
  13. GRANISETRON [Concomitant]
     Active Substance: GRANISETRON
     Dosage: 1 MG, UNK
     Dates: start: 20140519, end: 20140915
  14. IBUPROFEN [Concomitant]
     Active Substance: IBUPROFEN
     Dosage: UNK
     Dates: end: 20140928
  15. OMEPRAZOLE [Concomitant]
     Active Substance: OMEPRAZOLE
     Dosage: 40 MG, QD
  16. KALINOR [Concomitant]
     Dosage: 1.56 G, UNK
     Dates: start: 20140324, end: 20140329
  17. SODIUM CHLORIDE [Concomitant]
     Active Substance: SODIUM CHLORIDE
     Dosage: 500 MILLILITER
     Dates: start: 20140321, end: 20140321
  18. SODIUM CHLORIDE [Concomitant]
     Active Substance: SODIUM CHLORIDE
     Dosage: 1000 MILLILITER
     Dates: start: 20140929, end: 20140930
  19. NORSPAN [Concomitant]
     Active Substance: BUPRENORPHINE
     Dosage: 5 MUG, QWK
     Dates: start: 20140218, end: 20141001
  20. OLIMEL [Concomitant]
     Active Substance: AMINO ACIDS\DEXTROSE\SOYBEAN OIL
     Dosage: 1000 ML (4.4%), QD
     Dates: start: 20140620, end: 20140728
  21. OLIMEL [Concomitant]
     Active Substance: AMINO ACIDS\DEXTROSE\SOYBEAN OIL
     Dosage: 1000 MILLILITER
     Dates: start: 20140929, end: 20140930
  22. OLIMEL [Concomitant]
     Active Substance: AMINO ACIDS\DEXTROSE\SOYBEAN OIL
     Dosage: 1000 MILLILITER
     Dates: start: 20140729, end: 20140928
  23. OLIMEL [Concomitant]
     Active Substance: AMINO ACIDS\DEXTROSE\SOYBEAN OIL
     Dosage: 2000 MILLILITER
     Dates: start: 20140321, end: 20140321
  24. UNSPECIFIED INGREDIENT [Concomitant]
     Active Substance: UNSPECIFIED INGREDIENT
     Dosage: 1000 ML, UNK
     Dates: start: 20140729
  25. CERNEVIT [Concomitant]
     Active Substance: VITAMINS
     Dosage: UNK
  26. CALCIUM CHLORIDE\MAGNESIUM CHLORIDE\POTASSIUM CHLORIDE\SODIUM ACETATE\ [Concomitant]
     Active Substance: CALCIUM CHLORIDE\MAGNESIUM CHLORIDE\POTASSIUM CHLORIDE\SODIUM ACETATE\SODIUM CHLORIDE
     Dosage: 500 MILLILITER
     Route: 042
     Dates: start: 20140320, end: 20140321
  27. ASCORBIC ACID\MINERALS\VITAMINS [Concomitant]
     Active Substance: ASCORBIC ACID\MINERALS\VITAMINS
     Dosage: UNK
     Dates: start: 20140324, end: 20140620
  28. NALOXONE HYDROCHLORIDE\OXYCODONE HYDROCHLORIDE [Concomitant]
     Active Substance: NALOXONE HYDROCHLORIDE\OXYCODONE HYDROCHLORIDE
     Dosage: UNK
     Dates: start: 20140219, end: 20140527
  29. LENOGRASTIM [Concomitant]
     Active Substance: LENOGRASTIM
     Dosage: 34 MG, UNK
     Dates: start: 20140322, end: 20140322
  30. ENOXAPARIN [Concomitant]
     Active Substance: ENOXAPARIN
     Indication: Prophylaxis
     Dosage: 20 MILLIGRAM
     Dates: start: 20140930, end: 20140930

REACTIONS (29)
  - Pneumonia [Not Recovered/Not Resolved]
  - Osteonecrosis of jaw [Not Recovered/Not Resolved]
  - Respiratory arrest [Fatal]
  - Pneumonia [Fatal]
  - Weight decreased [Unknown]
  - Dehydration [Unknown]
  - Neutropenia [Unknown]
  - Decreased appetite [Recovering/Resolving]
  - Blood urea increased [Not Recovered/Not Resolved]
  - Hypoalbuminaemia [Not Recovered/Not Resolved]
  - Monocyte count increased [Not Recovered/Not Resolved]
  - Lymphocyte count decreased [Not Recovered/Not Resolved]
  - Gamma-glutamyltransferase increased [Not Recovered/Not Resolved]
  - Aspartate aminotransferase increased [Recovered/Resolved]
  - Alanine aminotransferase increased [Recovered/Resolved]
  - Urinary incontinence [Not Recovered/Not Resolved]
  - Abdominal pain [Not Recovered/Not Resolved]
  - Fatigue [Not Recovered/Not Resolved]
  - Hypocalcaemia [Recovered/Resolved]
  - Dyspnoea [Not Recovered/Not Resolved]
  - Hypophagia [Unknown]
  - Pyrexia [Unknown]
  - Blood lactate dehydrogenase increased [Unknown]
  - Vertigo positional [Unknown]
  - Periodontitis [Unknown]
  - Constipation [Recovered/Resolved]
  - Pain in extremity [Unknown]
  - Nausea [Unknown]
  - Diarrhoea [Unknown]

NARRATIVE: CASE EVENT DATE: 20140101
